FAERS Safety Report 18866458 (Version 1)
Quarter: 2021Q1

REPORT INFORMATION
  Report Type: Spontaneous
  Country: US (occurrence: US)
  Receive Date: 20210208
  Receipt Date: 20210208
  Transmission Date: 20210420
  Serious: Yes (Other)
  Sender: FDA-Public Use
  Company Number: US-INCYTE CORPORATION-2021IN000991

PATIENT

DRUGS (1)
  1. JAKAFI [Suspect]
     Active Substance: RUXOLITINIB
     Indication: MYELOPROLIFERATIVE NEOPLASM
     Dosage: 15 MILLIGRAM, BID
     Route: 048
     Dates: start: 20210125

REACTIONS (6)
  - Thrombosis [Unknown]
  - Weight increased [Unknown]
  - Energy increased [Unknown]
  - Off label use [Unknown]
  - Peripheral swelling [Unknown]
  - Increased appetite [Unknown]

NARRATIVE: CASE EVENT DATE: 20210125
